FAERS Safety Report 15684500 (Version 3)
Quarter: 2019Q1

REPORT INFORMATION
  Report Type: Spontaneous
  Country: SE (occurrence: GH)
  Receive Date: 20181204
  Receipt Date: 20190123
  Transmission Date: 20190417
  Serious: Yes (Other)
  Sender: FDA-Public Use
  Company Number: SE-GLENMARK PHARMACEUTICALS-2018GMK038451

PATIENT

DRUGS (1)
  1. ATOVAKVON / PROGUANIL GLENMARK 250 MG/100 MG FILMDRAGERADE TABLETTER [Suspect]
     Active Substance: ATOVAQUONE\PROGUANIL
     Indication: MALARIA PROPHYLAXIS
     Dosage: 1 DF, AM (EACH DAY FOR 5 WEEKS, EVERY MORNING)
     Route: 065
     Dates: start: 20181012

REACTIONS (3)
  - Malaria [Recovered/Resolved]
  - Drug ineffective [Unknown]
  - Diarrhoea [Recovered/Resolved]

NARRATIVE: CASE EVENT DATE: 2018
